FAERS Safety Report 14040003 (Version 2)
Quarter: 2017Q4

REPORT INFORMATION
  Report Type: Spontaneous
  Country: US (occurrence: US)
  Receive Date: 20171004
  Receipt Date: 20171120
  Transmission Date: 20180321
  Serious: Yes (Other)
  Sender: FDA-Public Use
  Company Number: US-PFIZER INC-2017426263

PATIENT
  Age: 56 Year
  Sex: Female
  Weight: 66.21 kg

DRUGS (1)
  1. IBRANCE [Suspect]
     Active Substance: PALBOCICLIB
     Indication: BREAST CANCER METASTATIC
     Dosage: 125 MG, CYCLIC (DAYS 1-21 Q28 DAYS)
     Route: 048
     Dates: start: 201608, end: 201710

REACTIONS (9)
  - Musculoskeletal chest pain [Unknown]
  - Neoplasm progression [Unknown]
  - Lymphoedema [Unknown]
  - Pelvic pain [Unknown]
  - Pulmonary oedema [Unknown]
  - Neck pain [Unknown]
  - Musculoskeletal pain [Unknown]
  - Nausea [Unknown]
  - Retching [Unknown]
